FAERS Safety Report 8237533-6 (Version None)
Quarter: 2012Q1

REPORT INFORMATION
  Report Type: 
  Country: None (occurrence: None)
  Receive Date: 20120327
  Receipt Date: 20120320
  Transmission Date: 20120608
  Serious: Yes (Death)
  Sender: FDA-Public Use
  Company Number: US-ASTRAZENECA-2012SE18705

PATIENT
  Sex: Female

DRUGS (2)
  1. FULVESTRANT [Suspect]
     Indication: BREAST CANCER METASTATIC
     Route: 030
  2. GEFITINIB [Suspect]
     Indication: BREAST CANCER METASTATIC
     Route: 048

REACTIONS (2)
  - PNEUMONIA [None]
  - RESPIRATORY FAILURE [None]
